FAERS Safety Report 19074053 (Version 1)
Quarter: 2021Q1

REPORT INFORMATION
  Report Type: Spontaneous
  Country: KR (occurrence: KR)
  Receive Date: 20210330
  Receipt Date: 20210330
  Transmission Date: 20210420
  Serious: Yes (Other)
  Sender: FDA-Public Use
  Company Number: KR-STRIDES ARCOLAB LIMITED-2021SP003534

PATIENT
  Age: 18 Year
  Sex: Female

DRUGS (2)
  1. TIXOCORTOL [Suspect]
     Active Substance: TIXOCORTOL PIVALATE
     Indication: PRODUCT USED FOR UNKNOWN INDICATION
     Dosage: UNK
     Route: 065
  2. HYDROCORTISONE. [Suspect]
     Active Substance: HYDROCORTISONE
     Indication: DERMATITIS
     Dosage: UNK, LOTION
     Route: 061

REACTIONS (4)
  - Therapeutic product cross-reactivity [Recovered/Resolved]
  - Skin reaction [Recovered/Resolved]
  - Dermatitis acneiform [Recovered/Resolved]
  - Dermatitis contact [Recovered/Resolved]
